FAERS Safety Report 4436274-0 (Version None)
Quarter: 2004Q3

REPORT INFORMATION
  Report Type: 
  Country: None (occurrence: None)
  Receive Date: 20040830
  Receipt Date: 20040621
  Transmission Date: 20050211
  Serious: Yes (Hospitalization)
  Sender: FDA-Public Use
  Company Number: US-BRISTOL-MYERS SQUIBB COMPANY-12621678

PATIENT
  Age: 33 Year
  Sex: Male
  Weight: 89 kg

DRUGS (7)
  1. ERBITUX [Suspect]
     Indication: GASTRIC CANCER STAGE IV WITH METASTASES
     Route: 042
  2. ANZEMET [Concomitant]
  3. ATENOLOL [Concomitant]
  4. METHADONE HCL [Concomitant]
  5. MORPHINE [Concomitant]
  6. NEXIUM [Concomitant]
  7. PRINIVIL [Concomitant]

REACTIONS (4)
  - ABDOMINAL PAIN UPPER [None]
  - NAUSEA [None]
  - RASH [None]
  - VOMITING [None]
